FAERS Safety Report 6910141-2 (Version None)
Quarter: 2010Q3

REPORT INFORMATION
  Report Type: 
  Country: None (occurrence: None)
  Receive Date: 20100806
  Receipt Date: 20100728
  Transmission Date: 20110219
  Serious: Yes (Hospitalization)
  Sender: FDA-Public Use
  Company Number: MX-ELI_LILLY_AND_COMPANY-MX201007007212

PATIENT
  Age: 31 Year
  Sex: Female
  Weight: 53 kg

DRUGS (3)
  1. HUMALOG [Suspect]
     Indication: TYPE 1 DIABETES MELLITUS
     Dosage: 5 IU, UNKNOWN
     Route: 058
  2. LANTUS [Concomitant]
     Dosage: 20 IU, UNKNOWN
     Route: 065
  3. LEVOTHYROXINE [Concomitant]
     Dosage: 150 MG, DAILY (1/D)
     Route: 065

REACTIONS (2)
  - DRUG EXPOSURE DURING PREGNANCY [None]
  - HIGH RISK PREGNANCY [None]
